FAERS Safety Report 16716933 (Version 1)
Quarter: 2019Q3

REPORT INFORMATION
  Report Type: Report from Study
  Country: CA (occurrence: CA)
  Receive Date: 20190819
  Receipt Date: 20190819
  Transmission Date: 20191005
  Serious: Yes (Other)
  Sender: FDA-Public Use
  Company Number: CA-JNJFOC-20190817180

PATIENT
  Age: 51 Year
  Sex: Female
  Weight: 68.49 kg

DRUGS (1)
  1. REMICADE [Suspect]
     Active Substance: INFLIXIMAB
     Indication: CROHN^S DISEASE
     Route: 042

REACTIONS (2)
  - Hysterectomy [Unknown]
  - Post procedural infection [Unknown]

NARRATIVE: CASE EVENT DATE: 20190704
